FAERS Safety Report 19838570 (Version 1)
Quarter: 2021Q3

REPORT INFORMATION
  Report Type: Spontaneous
  Country: US (occurrence: US)
  Receive Date: 20210915
  Receipt Date: 20210915
  Transmission Date: 20211014
  Serious: Yes (Other)
  Sender: FDA-Public Use
  Company Number: None

PATIENT
  Age: 56 Year
  Sex: Female
  Weight: 108.9 kg

DRUGS (22)
  1. GEMFIBROZIL. [Concomitant]
     Active Substance: GEMFIBROZIL
  2. HYDROCHLOTHIAZIDE [Concomitant]
     Active Substance: HYDROCHLOROTHIAZIDE
  3. ZOFRAN [Concomitant]
     Active Substance: ONDANSETRON HYDROCHLORIDE
  4. CRESTOR [Concomitant]
     Active Substance: ROSUVASTATIN CALCIUM
  5. GLIPIZIDE. [Concomitant]
     Active Substance: GLIPIZIDE
  6. TRAZODONE [Concomitant]
     Active Substance: TRAZODONE HYDROCHLORIDE
  7. MAGNESIUM [Concomitant]
     Active Substance: MAGNESIUM
  8. HALOPERIDOL. [Concomitant]
     Active Substance: HALOPERIDOL
  9. IMODIUM [Concomitant]
     Active Substance: LOPERAMIDE HYDROCHLORIDE
  10. CANE [Concomitant]
  11. ZOFRAN [Concomitant]
     Active Substance: ONDANSETRON HYDROCHLORIDE
  12. VALSARTAN. [Concomitant]
     Active Substance: VALSARTAN
  13. VITAMIN E [Concomitant]
     Active Substance: .ALPHA.-TOCOPHEROL
  14. IBUPROFEN. [Concomitant]
     Active Substance: IBUPROFEN
  15. GABAPENTIN. [Concomitant]
     Active Substance: GABAPENTIN
  16. CLONAZEPAM. [Concomitant]
     Active Substance: CLONAZEPAM
  17. DICYCLOMINE [Concomitant]
     Active Substance: DICYCLOMINE HYDROCHLORIDE
  18. MULTIVITAMIN [Concomitant]
     Active Substance: VITAMINS
  19. BENZTROPINE. [Suspect]
     Active Substance: BENZTROPINE
     Dosage: ?          QUANTITY:60 TABLET(S);?
     Route: 048
     Dates: start: 20210818, end: 20210826
  20. METOPROLOL SUCCINATE. [Concomitant]
     Active Substance: METOPROLOL SUCCINATE
  21. PANTOPRAZOLE [Concomitant]
     Active Substance: PANTOPRAZOLE
  22. FAMOTIDINE. [Concomitant]
     Active Substance: FAMOTIDINE

REACTIONS (2)
  - Dysuria [None]
  - Blood urine present [None]

NARRATIVE: CASE EVENT DATE: 20210826
